FAERS Safety Report 6296196-X (Version None)
Quarter: 2009Q3

REPORT INFORMATION
  Report Type: 
  Country: None (occurrence: None)
  Receive Date: 20090804
  Receipt Date: 20090729
  Transmission Date: 20100115
  Serious: No
  Sender: FDA-Public Use
  Company Number: US-ASTRAZENECA-2009UW21535

PATIENT
  Age: 65 Year
  Sex: Male

DRUGS (5)
  1. TOPROL-XL [Suspect]
     Route: 048
     Dates: start: 20090201
  2. LISINOPRIL [Concomitant]
  3. HYDROCHLOROTHIAZIDE [Concomitant]
  4. GLUCOSAMINE SULFATE [Concomitant]
  5. CENTRUM VITAMINS [Concomitant]

REACTIONS (1)
  - IDIOPATHIC THROMBOCYTOPENIC PURPURA [None]
